FAERS Safety Report 5386245-5 (Version None)
Quarter: 2007Q3

REPORT INFORMATION
  Report Type: 
  Country: None (occurrence: None)
  Receive Date: 20070713
  Receipt Date: 20070706
  Transmission Date: 20080115
  Serious: Yes (Hospitalization, Other)
  Sender: FDA-Public Use
  Company Number: PHBS2007BR11662

PATIENT
  Age: 54 Year
  Sex: Female
  Weight: 71.6 kg

DRUGS (9)
  1. FORASEQ [Suspect]
     Indication: ASTHMA
  2. OS-CAL D [Concomitant]
     Indication: OSTEOPOROSIS
  3. ACTONEL [Concomitant]
  4. BEROTEC [Concomitant]
  5. ATROVENT [Concomitant]
  6. BAMBEC [Concomitant]
     Dosage: 10 ML/NIGHT
  7. DIGESAN [Concomitant]
  8. BLOCOSOL [Concomitant]
     Indication: RHINITIS
  9. COMBIVENT [Concomitant]

REACTIONS (5)
  - ASTHMA [None]
  - BLOOD POTASSIUM DECREASED [None]
  - BLOOD PRESSURE INCREASED [None]
  - BRONCHOPNEUMONIA [None]
  - DYSPNOEA EXERTIONAL [None]
